FAERS Safety Report 13063657 (Version 1)
Quarter: 2016Q4

REPORT INFORMATION
  Report Type: Spontaneous
  Country: US (occurrence: US)
  Receive Date: 20161227
  Receipt Date: 20161227
  Transmission Date: 20170207
  Serious: No
  Sender: FDA-Public Use
  Company Number: US-PFIZER INC-2016582703

PATIENT
  Age: 60 Year
  Sex: Female

DRUGS (6)
  1. IODINE. [Suspect]
     Active Substance: IODINE
  2. REQUIP [Suspect]
     Active Substance: ROPINIROLE HYDROCHLORIDE
  3. SINEMET [Suspect]
     Active Substance: CARBIDOPA\LEVODOPA
  4. CODEINE [Suspect]
     Active Substance: CODEINE
  5. ERYTHROMYCIN. [Suspect]
     Active Substance: ERYTHROMYCIN
  6. MECLOMEN [Suspect]
     Active Substance: MECLOFENAMATE SODIUM

REACTIONS (1)
  - Drug hypersensitivity [Unknown]
